FAERS Safety Report 13016665 (Version 1)
Quarter: 2016Q4

REPORT INFORMATION
  Report Type: Spontaneous
  Country: GB (occurrence: GB)
  Receive Date: 20161212
  Receipt Date: 20161212
  Transmission Date: 20170207
  Serious: Yes (Disabling, Other)
  Sender: FDA-Public Use
  Company Number: GB-ACCORD-046259

PATIENT
  Age: 71 Year
  Sex: Female
  Weight: 67 kg

DRUGS (10)
  1. ASPIRIN. [Concomitant]
     Active Substance: ASPIRIN
  2. FUROSEMIDE. [Concomitant]
     Active Substance: FUROSEMIDE
  3. NICORANDIL [Concomitant]
     Active Substance: NICORANDIL
  4. AMLODIPINE [Suspect]
     Active Substance: AMLODIPINE BESYLATE
     Indication: ACCELERATED HYPERTENSION
     Route: 048
     Dates: start: 20161107, end: 20161118
  5. PARACETAMOL ASPAR PHARMS [Concomitant]
  6. ATORVASTATIN [Concomitant]
     Active Substance: ATORVASTATIN
  7. SALAMOL [Concomitant]
     Active Substance: ALBUTEROL
  8. BISOPROLOL [Concomitant]
     Active Substance: BISOPROLOL
     Dates: start: 20100515
  9. CLOPIDOGREL [Concomitant]
     Active Substance: CLOPIDOGREL BISULFATE
  10. GLYCERYL TRINITRATE ACTAVIS UK [Concomitant]
     Route: 060

REACTIONS (8)
  - Sleep disorder [Not Recovered/Not Resolved]
  - Insomnia [Not Recovered/Not Resolved]
  - Dizziness postural [Not Recovered/Not Resolved]
  - Chest pain [Not Recovered/Not Resolved]
  - Anxiety [Not Recovered/Not Resolved]
  - Fatigue [Not Recovered/Not Resolved]
  - Constipation [Not Recovered/Not Resolved]
  - Palpitations [Not Recovered/Not Resolved]

NARRATIVE: CASE EVENT DATE: 20161107
